FAERS Safety Report 15822745 (Version 3)
Quarter: 2020Q3

REPORT INFORMATION
  Report Type: Spontaneous
  Country: US (occurrence: US)
  Receive Date: 20190114
  Receipt Date: 20200806
  Transmission Date: 20201102
  Serious: Yes (Death, Other)
  Sender: FDA-Public Use
  Company Number: US-ABBVIE-18K-163-2519723-00

PATIENT
  Age: 75 Year
  Sex: Male
  Weight: 84.44 kg

DRUGS (2)
  1. VENCLEXTA [Suspect]
     Active Substance: VENETOCLAX
     Indication: ACUTE MYELOID LEUKAEMIA
     Route: 048
     Dates: start: 201911, end: 202002
  2. VENCLEXTA [Suspect]
     Active Substance: VENETOCLAX
     Indication: REFRACTORY ANAEMIA WITH AN EXCESS OF BLASTS

REACTIONS (3)
  - Hospitalisation [Unknown]
  - Intentional product use issue [Recovered/Resolved]
  - Cardio-respiratory arrest [Fatal]

NARRATIVE: CASE EVENT DATE: 20200405
